FAERS Safety Report 8524001-7 (Version None)
Quarter: 2012Q3

REPORT INFORMATION
  Report Type: 
  Country: None (occurrence: None)
  Receive Date: 20120720
  Receipt Date: 20120711
  Transmission Date: 20120928
  Serious: Yes (Disabling, Other)
  Sender: FDA-Public Use
  Company Number: FR-ASTRAZENECA-2012SE43905

PATIENT
  Age: 92 Year
  Sex: Male

DRUGS (1)
  1. ZOLADEX [Suspect]
     Indication: PROSTATE CANCER METASTATIC
     Route: 058
     Dates: start: 20110101

REACTIONS (6)
  - AXONAL NEUROPATHY [None]
  - DIPLEGIA [None]
  - GASTRIC CANCER [None]
  - HOT FLUSH [None]
  - MUSCULAR WEAKNESS [None]
  - CAMPTOCORMIA [None]
